FAERS Safety Report 9207940 (Version 1)
Quarter: 2013Q2

REPORT INFORMATION
  Report Type: Spontaneous
  Country: IT (occurrence: IT)
  Receive Date: 20130403
  Receipt Date: 20130403
  Transmission Date: 20140414
  Serious: Yes (Other)
  Sender: FDA-Public Use
  Company Number: IT-ELI_LILLY_AND_COMPANY-IT201303008140

PATIENT
  Age: 59 Year
  Sex: Male

DRUGS (4)
  1. GEMZAR [Suspect]
     Indication: PANCREATIC CARCINOMA
     Dosage: 1700 MG, UNK
     Route: 042
     Dates: start: 20121105
  2. ONDANSETRON [Concomitant]
     Indication: PANCREATIC CARCINOMA
     Dosage: 8 MG, UNK
     Dates: start: 20121105, end: 20121105
  3. DEXAMETHASONE [Concomitant]
     Indication: PANCREATIC CARCINOMA
     Dosage: 8 MG, UNK
     Route: 042
     Dates: start: 20121105, end: 20121105
  4. RANITIDINE [Concomitant]
     Indication: PANCREATIC CARCINOMA
     Dosage: UNK
     Dates: start: 20121105, end: 20121105

REACTIONS (8)
  - Nausea [Recovering/Resolving]
  - Vomiting [Recovering/Resolving]
  - Diarrhoea [Recovering/Resolving]
  - Stomatitis [Recovering/Resolving]
  - Cough [Recovering/Resolving]
  - Throat irritation [Recovering/Resolving]
  - Paraesthesia [Recovering/Resolving]
  - Pain in extremity [Recovering/Resolving]
